FAERS Safety Report 5711131-8 (Version None)
Quarter: 2008Q2

REPORT INFORMATION
  Report Type: 
  Country: None (occurrence: None)
  Receive Date: 20080417
  Receipt Date: 20080417
  Transmission Date: 20081010
  Serious: Yes (Death, Hospitalization)
  Sender: FDA-Public Use
  Company Number: None

PATIENT
  Age: 51 Year
  Sex: Male
  Weight: 57.1532 kg

DRUGS (2)
  1. CISPLATIN [Suspect]
     Dosage: 54 MG IV
     Route: 042
     Dates: start: 20060221, end: 20060228
  2. IRINOTECAN HCL [Suspect]
     Dosage: 90 MG IV
     Route: 042
     Dates: start: 20060221, end: 20060228

REACTIONS (1)
  - PNEUMONIA [None]
